FAERS Safety Report 9075830 (Version 1)
Quarter: 2013Q1

REPORT INFORMATION
  Report Type: Report from Study
  Country: US (occurrence: US)
  Receive Date: 20130129
  Receipt Date: 20130129
  Transmission Date: 20140127
  Serious: No
  Sender: FDA-Public Use
  Company Number: US-ABBOTT-12P-163-0937740-00

PATIENT
  Sex: Female
  Weight: 59.02 kg

DRUGS (4)
  1. HUMIRA 40 MG/ 0.8 ML PRE-FILLED SYRINGE [Suspect]
     Indication: RHEUMATOID ARTHRITIS
     Route: 058
     Dates: end: 201111
  2. HUMIRA 40 MG/ 0.8 ML PRE-FILLED SYRINGE [Suspect]
     Route: 058
     Dates: start: 201111, end: 201205
  3. PHENOBARBITAL [Concomitant]
     Indication: EPILEPSY
  4. NASONEX [Concomitant]
     Indication: SEASONAL ALLERGY

REACTIONS (2)
  - Nervousness [Not Recovered/Not Resolved]
  - Psoriasis [Not Recovered/Not Resolved]
